FAERS Safety Report 13719437 (Version 1)
Quarter: 2017Q3

REPORT INFORMATION
  Report Type: Spontaneous
  Country: US (occurrence: US)
  Receive Date: 20170705
  Receipt Date: 20170705
  Transmission Date: 20171127
  Serious: No
  Sender: FDA-Public Use
  Company Number: US-ROCHE-1906086

PATIENT

DRUGS (1)
  1. GAZYVA [Suspect]
     Active Substance: OBINUTUZUMAB
     Indication: PRODUCT USED FOR UNKNOWN INDICATION
     Dosage: PREPARED 1000 MG INSTEAD OF 100 MG
     Route: 042

REACTIONS (3)
  - No adverse event [Unknown]
  - Product preparation error [Unknown]
  - Intercepted medication error [Unknown]
